FAERS Safety Report 7364354-9 (Version None)
Quarter: 2011Q1

REPORT INFORMATION
  Report Type: 
  Country: None (occurrence: None)
  Receive Date: 20110321
  Receipt Date: 20110308
  Transmission Date: 20110831
  Serious: Yes (Hospitalization)
  Sender: FDA-Public Use
  Company Number: US-JNJFOC-20110304627

PATIENT
  Age: 27 Year
  Sex: Female

DRUGS (4)
  1. CIPROFLOXACIN [Concomitant]
  2. INFLIXIMAB, RECOMBINANT [Suspect]
     Indication: CROHN'S DISEASE
     Route: 042
  3. AZATHIOPRINE [Concomitant]
  4. PREDNISONE [Suspect]
     Indication: PRODUCT USED FOR UNKNOWN INDICATION

REACTIONS (6)
  - FISTULA [None]
  - ENTEROVESICAL FISTULA [None]
  - CROHN'S DISEASE [None]
  - ANAEMIA [None]
  - URINARY TRACT INFECTION [None]
  - FAECALURIA [None]
